FAERS Safety Report 8478075-2 (Version None)
Quarter: 2012Q2

REPORT INFORMATION
  Report Type: 
  Country: None (occurrence: None)
  Receive Date: 20120622
  Receipt Date: 20120602
  Transmission Date: 20120825
  Serious: Yes (Other)
  Sender: FDA-Public Use
  Company Number: 2012POI057500116

PATIENT
  Age: 60 Year
  Sex: Female

DRUGS (15)
  1. CLONIDINE [Concomitant]
  2. NPH INSULIN [Concomitant]
  3. ERYTHROPOIETIN (ERYTHROPOIETIN) [Concomitant]
  4. ALLOPURINOL [Concomitant]
  5. AMICAR [Suspect]
     Dosage: (1.0 GRAM/HOUR),INTRAVENOUS
     Route: 042
  6. LISINOPRIL [Concomitant]
  7. COLCHICINE [Concomitant]
  8. FAMOTIDINE [Concomitant]
  9. ATENOLOL [Concomitant]
  10. PREDNISONE TAB [Concomitant]
  11. DESMOPRESSIN ACETATE [Concomitant]
  12. METOCLOPRAMIDE [Concomitant]
  13. HYDROCORTONE [Concomitant]
  14. AMICAR [Suspect]
     Indication: HAEMORRHAGE
     Dosage: (10 GRAM,ONCE),INTRAVENOUS BOLUS
     Route: 040
  15. COUMADIN [Concomitant]

REACTIONS (2)
  - PO2 INCREASED [None]
  - HYPERKALAEMIA [None]
